FAERS Safety Report 7921680-X (Version None)
Quarter: 2011Q4

REPORT INFORMATION
  Report Type: 
  Country: None (occurrence: None)
  Receive Date: 20111117
  Receipt Date: 20111104
  Transmission Date: 20120403
  Serious: Yes (Hospitalization)
  Sender: FDA-Public Use
  Company Number: US-GLAXOSMITHKLINE-A0870737A

PATIENT
  Sex: Male

DRUGS (11)
  1. COLESTID [Concomitant]
  2. PAXIL [Concomitant]
  3. LANTUS [Concomitant]
  4. LIPITOR [Concomitant]
  5. LISINOPRIL [Concomitant]
  6. GLIPIZIDE [Concomitant]
  7. COREG [Concomitant]
  8. FUROSEMIDE [Concomitant]
  9. GLUCOPHAGE [Concomitant]
  10. NITROGLYCERIN [Concomitant]
  11. AVANDIA [Suspect]
     Indication: DIABETES MELLITUS
     Dosage: 8MG PER DAY
     Route: 048
     Dates: start: 20020806, end: 20060601

REACTIONS (1)
  - MYOCARDIAL INFARCTION [None]
